FAERS Safety Report 10656624 (Version 2)
Quarter: 2014Q4

REPORT INFORMATION
  Report Type: Spontaneous
  Country: GB (occurrence: GB)
  Receive Date: 20141216
  Receipt Date: 20141216
  Transmission Date: 20150529
  Serious: Yes (Other)
  Sender: FDA-Public Use
  Company Number: GB-ABBVIE-14K-167-1307832-00

PATIENT
  Age: 48 Year
  Sex: Female

DRUGS (4)
  1. LOPERAMIDE [Concomitant]
     Active Substance: LOPERAMIDE
     Indication: DIARRHOEA
     Route: 048
  2. FERROUS SULFATE [Concomitant]
     Active Substance: FERROUS SULFATE\FERROUS SULFATE, DRIED
     Indication: ANAEMIA
     Route: 048
  3. HUMIRA [Suspect]
     Active Substance: ADALIMUMAB
     Indication: CROHN^S DISEASE
     Route: 065
     Dates: end: 20141107
  4. METHYLPREDNISOLONE. [Concomitant]
     Active Substance: METHYLPREDNISOLONE
     Indication: DEMYELINATION
     Route: 048
     Dates: start: 20141111, end: 20141116

REACTIONS (4)
  - Demyelination [Not Recovered/Not Resolved]
  - CSF white blood cell count positive [Unknown]
  - Central nervous system lesion [Not Recovered/Not Resolved]
  - CSF lymphocyte count abnormal [Unknown]

NARRATIVE: CASE EVENT DATE: 20141007
